FAERS Safety Report 12924769 (Version 1)
Quarter: 2016Q4

REPORT INFORMATION
  Report Type: Spontaneous
  Country: US (occurrence: US)
  Receive Date: 20161108
  Receipt Date: 20161108
  Transmission Date: 20170207
  Serious: No
  Sender: FDA-Public Use
  Company Number: None

PATIENT
  Age: 64 Year
  Sex: Female
  Weight: 64.41 kg

DRUGS (2)
  1. LEVOTHYROXINE 100MCG [Suspect]
     Active Substance: LEVOTHYROXINE
     Indication: HYPOTHYROIDISM
     Dosage: 100MCG 1QD ORAL
     Route: 048
     Dates: start: 2013
  2. LEVOTHYROXINE 100MCG [Suspect]
     Active Substance: LEVOTHYROXINE
     Indication: BASEDOW^S DISEASE
     Dosage: 100MCG 1QD ORAL
     Route: 048
     Dates: start: 2013

REACTIONS (3)
  - Hypothyroidism [None]
  - Product substitution issue [None]
  - Malaise [None]

NARRATIVE: CASE EVENT DATE: 2013
